FAERS Safety Report 25976113 (Version 2)
Quarter: 2025Q4

REPORT INFORMATION
  Report Type: Report from Study
  Country: US (occurrence: US)
  Receive Date: 20251029
  Receipt Date: 20251107
  Transmission Date: 20260117
  Serious: No
  Sender: MALLINCKRODT
  Company Number: US-MALLINCKRODT-MNK202506713

PATIENT
  Age: 67 Year
  Sex: Female

DRUGS (5)
  1. CORTICOTROPIN [Suspect]
     Active Substance: CORTICOTROPIN
     Indication: Dermatitis
     Dosage: 80 UNITS
     Route: 058
     Dates: start: 20251024
  2. CORTICOTROPIN [Suspect]
     Active Substance: CORTICOTROPIN
     Indication: Myopathy
  3. CORTICOTROPIN [Suspect]
     Active Substance: CORTICOTROPIN
     Indication: Dermatitis
  4. CORTICOTROPIN [Suspect]
     Active Substance: CORTICOTROPIN
     Indication: Myopathy
  5. GABAPENTIN [Concomitant]
     Active Substance: GABAPENTIN
     Dosage: UNKNOWN

REACTIONS (7)
  - Nausea [Recovered/Resolved]
  - Back pain [Recovered/Resolved]
  - Balance disorder [Recovered/Resolved]
  - Taste disorder [Unknown]
  - Muscular weakness [Recovered/Resolved]
  - Headache [Unknown]
  - Fatigue [Unknown]

NARRATIVE: CASE EVENT DATE: 20250101
